FAERS Safety Report 6161381-4 (Version None)
Quarter: 2009Q2

REPORT INFORMATION
  Report Type: 
  Country: None (occurrence: None)
  Receive Date: 20090421
  Receipt Date: 20090415
  Transmission Date: 20091009
  Serious: Yes (Death, Other)
  Sender: FDA-Public Use
  Company Number: US-AMGEN-QUU343165

PATIENT
  Sex: Female

DRUGS (2)
  1. EPOGEN [Suspect]
     Indication: ANAEMIA OF MALIGNANT DISEASE
     Dates: start: 20030101
  2. UNSPECIFIED ANTINEOPLASTIC AGENT [Concomitant]

REACTIONS (2)
  - DEATH [None]
  - METASTASES TO LIVER [None]
